FAERS Safety Report 21886189 (Version 1)
Quarter: 2023Q1

REPORT INFORMATION
  Report Type: Spontaneous
  Country: JP (occurrence: None)
  Receive Date: 20230119
  Receipt Date: 20230119
  Transmission Date: 20230418
  Serious: Yes (Other)
  Sender: FDA-Public Use
  Company Number: 2023A009487

PATIENT
  Age: 90 Year
  Sex: Female

DRUGS (4)
  1. TAGRISSO [Suspect]
     Active Substance: OSIMERTINIB
     Indication: Non-small cell lung cancer
     Route: 048
     Dates: start: 201710
  2. TAGRISSO [Suspect]
     Active Substance: OSIMERTINIB
     Indication: Non-small cell lung cancer
     Dosage: 40 MG DAILY; ADMINISTERED FOR 2 WEEKS, FOLLOWED BY A 1-WEEK DRUG SUSPENSION
     Route: 048
     Dates: end: 201905
  3. TAGRISSO [Suspect]
     Active Substance: OSIMERTINIB
     Indication: Non-small cell lung cancer
     Route: 048
     Dates: start: 201905
  4. PREDNISOLONE [Concomitant]
     Active Substance: PREDNISOLONE
     Dosage: DOSE UNKNOWN
     Route: 065
     Dates: start: 201905

REACTIONS (3)
  - Pulmonary tuberculosis [Unknown]
  - Platelet count decreased [Unknown]
  - Rash [Unknown]

NARRATIVE: CASE EVENT DATE: 20200701
